FAERS Safety Report 11123208 (Version 2)
Quarter: 2015Q2

REPORT INFORMATION
  Report Type: Spontaneous
  Country: US (occurrence: US)
  Receive Date: 20150519
  Receipt Date: 20150528
  Transmission Date: 20150821
  Serious: Yes (Death, Hospitalization, Other)
  Sender: FDA-Public Use
  Company Number: US-APOTEX-2015AP009144

PATIENT
  Age: 67 Year
  Sex: Male

DRUGS (10)
  1. ACYCLOVIR. [Suspect]
     Active Substance: ACYCLOVIR
     Indication: PROPHYLAXIS
     Dosage: 800MG/DAY
     Route: 048
  2. ACICLOVIR [Suspect]
     Active Substance: ACYCLOVIR
     Indication: VARICELLA ZOSTER VIRUS INFECTION
     Dosage: UNK
     Route: 042
  3. VARICELLA VACCINE, LIVE [Suspect]
     Active Substance: VARICELLA-ZOSTER VIRUS STRAIN OKA/MERCK LIVE ANTIGEN
     Indication: IMMUNISATION
     Dosage: UNK
     Route: 065
     Dates: start: 201003
  4. AMPHOTERICIN B, LIPOSOME [Suspect]
     Active Substance: AMPHOTERICIN B
     Indication: PRODUCT USED FOR UNKNOWN INDICATION
     Dosage: UNK
  5. VALACICLOVIR [Suspect]
     Active Substance: VALACYCLOVIR HYDROCHLORIDE
     Dosage: UNK
  6. MUMPS VACCINE, LIVE [Concomitant]
     Indication: IMMUNISATION
     Dosage: UNK
     Route: 065
     Dates: start: 201003
  7. MEASLES VACCINE LIVE ATTENUATED [Concomitant]
     Indication: IMMUNISATION
     Dosage: UNK
     Dates: start: 201003
  8. ACICLOVIR [Suspect]
     Active Substance: ACYCLOVIR
     Indication: PROPHYLAXIS
     Dosage: 30 MG/KG/DAY HISTIOCYTOSIS HAEMATOPHAGIC
     Route: 042
     Dates: start: 201009
  9. VALACICLOVIR [Suspect]
     Active Substance: VALACYCLOVIR HYDROCHLORIDE
     Indication: VARICELLA ZOSTER VIRUS INFECTION
     Dosage: 3G/DAY
     Route: 065
  10. RUBELLA VIRUS VACCINE LIVE ATTEN. [Concomitant]
     Indication: IMMUNISATION
     Dosage: UNK
     Route: 065
     Dates: start: 201003

REACTIONS (9)
  - Pancytopenia [Unknown]
  - Anuria [Unknown]
  - Multi-organ failure [Fatal]
  - Encephalopathy [Unknown]
  - Varicella zoster virus infection [Fatal]
  - Granuloma [Fatal]
  - Histiocytosis haematophagic [Fatal]
  - Pneumonia pneumococcal [Unknown]
  - Pathogen resistance [Unknown]

NARRATIVE: CASE EVENT DATE: 201006
